FAERS Safety Report 8337270-3 (Version None)
Quarter: 2012Q2

REPORT INFORMATION
  Report Type: 
  Country: None (occurrence: None)
  Receive Date: 20120504
  Receipt Date: 20120424
  Transmission Date: 20120825
  Serious: Yes (Other)
  Sender: FDA-Public Use
  Company Number: CA-JNJFOC-20120412214

PATIENT
  Sex: Female
  Weight: 72.58 kg

DRUGS (1)
  1. REMICADE [Suspect]
     Indication: COLITIS ULCERATIVE
     Route: 042
     Dates: end: 20120101

REACTIONS (6)
  - RASH PUSTULAR [None]
  - SCAR PAIN [None]
  - VISION BLURRED [None]
  - RHINORRHOEA [None]
  - HEADACHE [None]
  - EAR PAIN [None]
